FAERS Safety Report 15029294 (Version 3)
Quarter: 2018Q3

REPORT INFORMATION
  Report Type: Spontaneous
  Country: US (occurrence: US)
  Receive Date: 20180619
  Receipt Date: 20180820
  Transmission Date: 20181010
  Serious: No
  Sender: FDA-Public Use
  Company Number: US-PFIZER INC-2018247115

PATIENT
  Age: 64 Year
  Sex: Female
  Weight: 94.97 kg

DRUGS (1)
  1. ATORVASTATIN CALCIUM. [Suspect]
     Active Substance: ATORVASTATIN CALCIUM
     Dosage: 10 MG, 1X/DAY (1 TAB(S) ORALLY ONCE A DAY AT BEDTIME, 30, REFILLS: 05)
     Route: 048

REACTIONS (1)
  - Treatment noncompliance [Unknown]
